FAERS Safety Report 24463690 (Version 1)
Quarter: 2024Q4

REPORT INFORMATION
  Report Type: Report from Study
  Country: US (occurrence: US)
  Receive Date: 20241018
  Receipt Date: 20241018
  Transmission Date: 20250115
  Serious: No
  Sender: ROCHE
  Company Number: US-ROCHE-3361522

PATIENT
  Age: 53 Year
  Sex: Female

DRUGS (6)
  1. XOLAIR [Suspect]
     Active Substance: OMALIZUMAB
     Indication: Idiopathic urticaria
     Route: 058
     Dates: start: 201310, end: 20240111
  2. EPIPEN [Concomitant]
     Active Substance: EPINEPHRINE
  3. DULOXETINE [Concomitant]
     Active Substance: DULOXETINE
  4. FLONASE [Concomitant]
     Active Substance: FLUTICASONE PROPIONATE
  5. ALBUTEROL [Concomitant]
     Active Substance: ALBUTEROL
  6. LORATADINE [Concomitant]
     Active Substance: LORATADINE

REACTIONS (6)
  - Off label use [Unknown]
  - Illness [Unknown]
  - Stress [Unknown]
  - Aphonia [Unknown]
  - Seasonal allergy [Unknown]
  - Urticaria [Unknown]

NARRATIVE: CASE EVENT DATE: 20240101
